FAERS Safety Report 5774663-2 (Version None)
Quarter: 2008Q2

REPORT INFORMATION
  Report Type: 
  Country: None (occurrence: None)
  Receive Date: 20080617
  Receipt Date: 20080609
  Transmission Date: 20081010
  Serious: Yes (Hospitalization, Other)
  Sender: FDA-Public Use
  Company Number: GB-RANBAXY-2008RR-15772

PATIENT

DRUGS (7)
  1. METFORMIN HCL [Suspect]
     Indication: WEIGHT DECREASED
     Dosage: 250 MG, QD
     Dates: start: 20080401, end: 20080405
  2. METFORMIN HCL [Suspect]
     Dosage: UNK MG, BID
  3. METFORMIN HCL [Suspect]
     Dosage: 250 MG, BID
     Dates: end: 20080405
  4. CLOZARIL [Suspect]
     Indication: SCHIZOPHRENIA
     Dosage: UNK
     Route: 048
     Dates: start: 20071102, end: 20080514
  5. DOCUSATE [Concomitant]
     Indication: CONSTIPATION
     Dosage: 200 MG, UNK
  6. HYOSCINE [Concomitant]
     Indication: SALIVARY HYPERSECRETION
     Dosage: 300 MG, TID
  7. SENNA [Concomitant]
     Indication: CONSTIPATION
     Dosage: 15 MG, UNK

REACTIONS (10)
  - DEHYDRATION [None]
  - DIARRHOEA [None]
  - DRUG INTERACTION [None]
  - ENURESIS [None]
  - GASTROENTERITIS [None]
  - NAUSEA [None]
  - NEUTROPENIA [None]
  - PNEUMONIA [None]
  - SALIVARY HYPERSECRETION [None]
  - VOMITING [None]
